FAERS Safety Report 8337786-X (Version None)
Quarter: 2012Q2

REPORT INFORMATION
  Report Type: 
  Country: None (occurrence: None)
  Receive Date: 20120504
  Receipt Date: 20120403
  Transmission Date: 20120825
  Serious: Yes (Hospitalization)
  Sender: FDA-Public Use
  Company Number: CA-GLAXOSMITHKLINE-A0972229A

PATIENT
  Sex: Male

DRUGS (16)
  1. AGGRENOX [Concomitant]
  2. VOTRIENT [Suspect]
     Indication: RENAL CANCER METASTATIC
     Dosage: 800MG PER DAY
     Route: 048
     Dates: start: 20110914
  3. ATROVENT [Concomitant]
  4. TYLENOL (CAPLET) [Concomitant]
  5. FLOVENT [Concomitant]
  6. SENOKOT [Concomitant]
  7. ADVAIR DISKUS 100/50 [Concomitant]
  8. FAMOTIDINE [Concomitant]
  9. TAMSULOSIN HCL [Concomitant]
  10. DILTIAZEM [Concomitant]
  11. DETROL [Concomitant]
  12. BRICANYL [Concomitant]
  13. EZETIMIBE [Concomitant]
  14. SPIRIVA [Concomitant]
  15. NITRO-DUR [Concomitant]
  16. LIPITOR [Concomitant]

REACTIONS (3)
  - DYSPNOEA [None]
  - DRUG INEFFECTIVE [None]
  - GASTRIC HAEMORRHAGE [None]
